FAERS Safety Report 10761584 (Version 1)
Quarter: 2015Q1

REPORT INFORMATION
  Report Type: Spontaneous
  Country: US (occurrence: None)
  Receive Date: 20150128
  Receipt Date: 20150128
  Transmission Date: 20150721
  Serious: Yes (Hospitalization)
  Sender: FDA-Public Use
  Company Number: 1437721

PATIENT
  Age: 70 Year
  Sex: Female

DRUGS (1)
  1. RITUXAN [Suspect]
     Active Substance: RITUXIMAB
     Indication: NON-HODGKIN^S LYMPHOMA
     Route: 042

REACTIONS (6)
  - Hypotension [None]
  - Pyrexia [None]
  - Sepsis [None]
  - Pharyngeal oedema [None]
  - Lip swelling [None]
  - Mouth swelling [None]

NARRATIVE: CASE EVENT DATE: 20140715
